FAERS Safety Report 6413368-1 (Version None)
Quarter: 2009Q4

REPORT INFORMATION
  Report Type: 
  Country: None (occurrence: None)
  Receive Date: 20091026
  Receipt Date: 20091014
  Transmission Date: 20100525
  Serious: Yes (Other)
  Sender: FDA-Public Use
  Company Number: MX-AMGEN-US367903

PATIENT
  Age: 44 Year
  Sex: Female

DRUGS (3)
  1. ENBREL [Suspect]
     Indication: RHEUMATOID ARTHRITIS
     Route: 058
     Dates: start: 20000901, end: 20090601
  2. OMEPRAZOLE [Concomitant]
     Indication: PROPHYLAXIS
     Route: 048
  3. NIMESULIDE [Concomitant]
     Indication: ANALGESIC THERAPY
     Route: 065

REACTIONS (5)
  - ANAEMIA [None]
  - ARTHRODESIS [None]
  - RENAL FAILURE [None]
  - RENAL TUBERCULOSIS [None]
  - URINARY TRACT INFECTION [None]
